FAERS Safety Report 9733045 (Version 2)
Quarter: 2013Q4

REPORT INFORMATION
  Report Type: Spontaneous
  Country: US (occurrence: US)
  Receive Date: 20131204
  Receipt Date: 20131204
  Transmission Date: 20140711
  Serious: No
  Sender: FDA-Public Use
  Company Number: US-GILEAD-2009-0021819

PATIENT
  Sex: Female
  Weight: 95.25 kg

DRUGS (16)
  1. LETAIRIS [Suspect]
     Indication: PULMONARY ARTERIAL HYPERTENSION
     Route: 048
     Dates: start: 20081029
  2. DIOVAN [Concomitant]
  3. VYTORIN [Concomitant]
  4. PLAVIX [Concomitant]
  5. BYSTOLIC [Concomitant]
  6. BETAPACE [Concomitant]
  7. SOTALOL [Concomitant]
  8. LASIX [Concomitant]
  9. ASPIRIN [Concomitant]
  10. SPIRIVA [Concomitant]
  11. SINGULAIR [Concomitant]
  12. PAXIL CR [Concomitant]
  13. NEXIUM [Concomitant]
  14. FOSAMAX [Concomitant]
  15. POTASSIUM CHLORIDE [Concomitant]
  16. CENTRUM SILVER [Concomitant]

REACTIONS (1)
  - Local swelling [Recovered/Resolved]
